FAERS Safety Report 21963179 (Version 1)
Quarter: 2023Q1

REPORT INFORMATION
  Report Type: Spontaneous
  Country: US (occurrence: None)
  Receive Date: 20230205
  Receipt Date: 20230205
  Transmission Date: 20230417
  Serious: Yes (Life-Threatening)
  Sender: FDA-Public Use
  Company Number: None

PATIENT
  Age: 39 Year
  Sex: Male
  Weight: 78.75 kg

DRUGS (2)
  1. ROGAINE [Suspect]
     Active Substance: MINOXIDIL
     Indication: Alopecia
     Dosage: FREQUENCY : TWICE A DAY;?
     Route: 061
     Dates: start: 20230110, end: 20230202
  2. MAGNESIUM [Concomitant]
     Active Substance: MAGNESIUM

REACTIONS (2)
  - Chest pain [None]
  - Cardiac failure [None]

NARRATIVE: CASE EVENT DATE: 20230202
